FAERS Safety Report 8906451 (Version 1)
Quarter: 2012Q4

REPORT INFORMATION
  Report Type: Spontaneous
  Country: US (occurrence: None)
  Receive Date: 20121108
  Receipt Date: 20121108
  Transmission Date: 20130627
  Serious: Yes (Life-Threatening, Other)
  Sender: FDA-Public Use
  Company Number: R-12-052

PATIENT
  Age: 26 Year
  Sex: Male
  Weight: 124.74 kg

DRUGS (6)
  1. ASTHMANEFRIN [Suspect]
     Indication: RESPIRATORY DISTRESS
     Dosage: 2 inhalations once 54
     Dates: start: 20121105
  2. VENTOLIN HFA INHALER [Concomitant]
  3. ADVAIR [Concomitant]
  4. PREDNISONE [Concomitant]
  5. FLOVENT [Concomitant]
  6. ALBUTEROL SULFATE 0.083% INHALATION SOLUTION [Concomitant]

REACTIONS (6)
  - Heart rate increased [None]
  - Blood pressure increased [None]
  - Feeling abnormal [None]
  - Hypoaesthesia [None]
  - Fall [None]
  - Respiratory distress [None]
